FAERS Safety Report 25101300 (Version 2)
Quarter: 2025Q2

REPORT INFORMATION
  Report Type: Spontaneous
  Country: US (occurrence: US)
  Receive Date: 20250320
  Receipt Date: 20250411
  Transmission Date: 20250716
  Serious: Yes (Other)
  Sender: CALLIDITAS THERAPEUTICS
  Company Number: US-Calliditas-2025CAL00457

PATIENT
  Age: 67 Year
  Sex: Male

DRUGS (33)
  1. TARPEYO [Suspect]
     Active Substance: BUDESONIDE
     Indication: IgA nephropathy
     Route: 048
     Dates: start: 20250205
  2. OZEMPIC [Concomitant]
     Active Substance: SEMAGLUTIDE
  3. LISINOPRIL [Concomitant]
     Active Substance: LISINOPRIL
  4. JARDIANCE [Concomitant]
     Active Substance: EMPAGLIFLOZIN
  5. FUROSEMIDE [Concomitant]
     Active Substance: FUROSEMIDE
  6. CARVEDILOL [Concomitant]
     Active Substance: CARVEDILOL
  7. ALBUTEROL [Concomitant]
     Active Substance: ALBUTEROL
  8. ASPIRIN [Concomitant]
     Active Substance: ASPIRIN
  9. ATORVASTATIN [Concomitant]
     Active Substance: ATORVASTATIN
  10. CALCIUM [Concomitant]
     Active Substance: CALCIUM
  11. CLOBETASOL [Concomitant]
     Active Substance: CLOBETASOL
  12. CLOTRIMAZOLE [Concomitant]
     Active Substance: CLOTRIMAZOLE
  13. DOCUSATE SODIUM [Concomitant]
     Active Substance: DOCUSATE SODIUM
  14. POTASSIUM CHLORIDE [Concomitant]
     Active Substance: POTASSIUM CHLORIDE
  15. SENNA LAXATIVE [Concomitant]
     Active Substance: SENNOSIDES
  16. SILDENAFIL [Concomitant]
     Active Substance: SILDENAFIL
  17. TIOTROPIUM BROMIDE [Concomitant]
     Active Substance: TIOTROPIUM BROMIDE
  18. TRESIBA [Concomitant]
     Active Substance: INSULIN DEGLUDEC
  19. TRIAMCINOLONE [Concomitant]
     Active Substance: TRIAMCINOLONE
  20. ENBREL [Concomitant]
     Active Substance: ETANERCEPT
  21. FLONASE ALLERGY RELIEF [Concomitant]
     Active Substance: FLUTICASONE PROPIONATE
  22. GABAPENTIN [Concomitant]
     Active Substance: GABAPENTIN
  23. HUMALOG [Concomitant]
     Active Substance: INSULIN LISPRO
  24. HYDROCORTISONE [Concomitant]
     Active Substance: HYDROCORTISONE
  25. LOSARTAN [Concomitant]
     Active Substance: LOSARTAN
  26. MAGNESIUM OXIDE [Concomitant]
     Active Substance: MAGNESIUM OXIDE
  27. METOPROLOL [Concomitant]
     Active Substance: METOPROLOL
  28. MIRALAX [Concomitant]
     Active Substance: POLYETHYLENE GLYCOL 3350
  29. OMEPRAZOLE [Concomitant]
     Active Substance: OMEPRAZOLE
  30. NITROGLYCERIN [Concomitant]
     Active Substance: NITROGLYCERIN
  31. URSODIOL [Concomitant]
     Active Substance: URSODIOL
  32. VITAMIN C [Concomitant]
     Active Substance: ASCORBIC ACID
  33. ZINC SULFATE [Concomitant]
     Active Substance: ZINC SULFATE

REACTIONS (10)
  - Product dose omission issue [Unknown]
  - Limb mass [Not Recovered/Not Resolved]
  - Oedema peripheral [Recovered/Resolved]
  - Blood glucose increased [Not Recovered/Not Resolved]
  - Renal impairment [Not Recovered/Not Resolved]
  - Dyspnoea exertional [Not Recovered/Not Resolved]
  - Blood pressure increased [Not Recovered/Not Resolved]
  - Abdominal discomfort [Recovered/Resolved]
  - Chills [Recovered/Resolved]
  - Weight decreased [Recovered/Resolved]

NARRATIVE: CASE EVENT DATE: 20250214
